FAERS Safety Report 23994813 (Version 5)
Quarter: 2024Q3

REPORT INFORMATION
  Report Type: Spontaneous
  Country: CA (occurrence: CA)
  Receive Date: 20240620
  Receipt Date: 20240816
  Transmission Date: 20241017
  Serious: Yes (Other)
  Sender: PFIZER
  Company Number: CA-PFIZER INC-202400074836

PATIENT
  Age: 55 Year
  Sex: Male
  Weight: 95 kg

DRUGS (7)
  1. RUXIENCE [Suspect]
     Active Substance: RITUXIMAB-PVVR
     Indication: Granulomatosis with polyangiitis
     Dosage: 215 MG, WEEKLY (X 4 DOSES (860MG TOTAL, IN 4 DIVIDED DOSES)
     Route: 042
     Dates: start: 20240502, end: 20240502
  2. RUXIENCE [Suspect]
     Active Substance: RITUXIMAB-PVVR
     Dosage: 215 MG, WEEKLY (X 4 DOSES (860MG TOTAL, IN 4 DIVIDED DOSES)
     Route: 042
     Dates: start: 20240502
  3. RUXIENCE [Suspect]
     Active Substance: RITUXIMAB-PVVR
     Dosage: 215 MG, WEEKLY (X 4 DOSES (860MG TOTAL, IN 4 DIVIDED DOSES)
     Route: 042
     Dates: start: 20240509
  4. RUXIENCE [Suspect]
     Active Substance: RITUXIMAB-PVVR
     Dosage: 215 MG, WEEKLY X 4 DOSES (860MG TOTAL, IN 4 DIVIDED DOSES)(AFTER 4 WEEKS AND 4 DAYS)
     Route: 042
     Dates: start: 20240610, end: 20240610
  5. RUXIENCE [Suspect]
     Active Substance: RITUXIMAB-PVVR
     Dosage: 215 MG, 4 WEEKS AND 1 DAY (WEEKLY X 4 DOSES) (860MG TOTAL, IN 4 DIVIDED DOSES)
     Route: 042
     Dates: start: 20240709
  6. KADIAN [Concomitant]
     Active Substance: MORPHINE SULFATE
     Indication: Pain
     Dosage: 10 MG, DAILY
  7. LEFLUNOMIDE [Concomitant]
     Active Substance: LEFLUNOMIDE
     Dosage: UNK

REACTIONS (27)
  - Condition aggravated [Not Recovered/Not Resolved]
  - Pericardial effusion [Unknown]
  - Plasma cell myeloma [Unknown]
  - Aortitis [Unknown]
  - Pericarditis [Unknown]
  - Chills [Recovered/Resolved]
  - Balance disorder [Not Recovered/Not Resolved]
  - Fatigue [Recovered/Resolved]
  - Depressed mood [Unknown]
  - Dysstasia [Unknown]
  - Confusional state [Unknown]
  - Fall [Unknown]
  - Weight decreased [Unknown]
  - Enthesopathy [Unknown]
  - Lymphadenopathy [Unknown]
  - Disorientation [Unknown]
  - Hypergammaglobulinaemia benign monoclonal [Unknown]
  - Aortic dilatation [Unknown]
  - Nausea [Recovering/Resolving]
  - Vomiting [Unknown]
  - Abdominal discomfort [Unknown]
  - Pyrexia [Unknown]
  - Illness [Unknown]
  - Dizziness [Unknown]
  - Intentional product use issue [Unknown]
  - Off label use [Unknown]
  - Off label use [Unknown]

NARRATIVE: CASE EVENT DATE: 20240101
